FAERS Safety Report 23226665 (Version 1)
Quarter: 2023Q4

REPORT INFORMATION
  Report Type: Spontaneous
  Country: TR (occurrence: TR)
  Receive Date: 20231124
  Receipt Date: 20231124
  Transmission Date: 20240109
  Serious: Yes (Life-Threatening, Hospitalization, Other)
  Sender: FDA-Public Use
  Company Number: TR-SUN PHARMACEUTICAL INDUSTRIES LTD-2023R1-419984

PATIENT
  Age: 16 Year
  Sex: Male

DRUGS (4)
  1. EPINEPHRINE [Suspect]
     Active Substance: EPINEPHRINE
     Indication: Urticaria
     Dosage: 0.01 MILLIGRAM/KILOGRAM
     Route: 030
  2. METHYLPREDNISOLONE [Suspect]
     Active Substance: METHYLPREDNISOLONE
     Indication: Urticaria
     Dosage: 1 MILLIGRAM/KILOGRAM
     Route: 042
  3. ALBUTEROL [Suspect]
     Active Substance: ALBUTEROL
     Indication: Urticaria
     Dosage: 2.5 MILLIGRAM
     Route: 045
  4. SALINE [Suspect]
     Active Substance: SODIUM CHLORIDE
     Indication: Urticaria
     Route: 065

REACTIONS (3)
  - Therapeutic response decreased [Unknown]
  - Ventricular extrasystoles [Unknown]
  - Hypotension [Unknown]
